FAERS Safety Report 7910348-1 (Version None)
Quarter: 2011Q4

REPORT INFORMATION
  Report Type: 
  Country: None (occurrence: None)
  Receive Date: 20111111
  Receipt Date: 20111027
  Transmission Date: 20120403
  Serious: Yes (Other)
  Sender: FDA-Public Use
  Company Number: JP-ROCHE-1006009

PATIENT
  Sex: Male

DRUGS (16)
  1. CARBOPLATIN [Suspect]
     Indication: LUNG ADENOCARCINOMA RECURRENT
     Route: 041
     Dates: start: 20110705, end: 20110907
  2. PACLITAXEL [Suspect]
     Indication: LUNG ADENOCARCINOMA RECURRENT
     Route: 041
     Dates: start: 20110705, end: 20110907
  3. GAMOFA [Concomitant]
  4. AVASTIN [Suspect]
     Indication: LUNG ADENOCARCINOMA
     Route: 041
     Dates: start: 20110705
  5. ALOXI [Concomitant]
  6. METFORMIN HCL [Concomitant]
  7. MUCOSTA [Concomitant]
     Dates: start: 20110726
  8. DECADRON [Concomitant]
  9. GLYCYRON [Concomitant]
     Dates: start: 20110726
  10. METHYCOBAL [Concomitant]
     Dates: start: 20110726
  11. LOXONIN [Concomitant]
     Dates: start: 20110726
  12. GOSHA-JINKI-GAN [Concomitant]
     Dates: start: 20110726
  13. CHLOR-TRIMETON [Concomitant]
  14. PERAPRIN [Concomitant]
  15. VALSARTAN [Concomitant]
  16. EPADEL [Concomitant]

REACTIONS (2)
  - INTERSTITIAL LUNG DISEASE [None]
  - NEUROPATHY PERIPHERAL [None]
